FAERS Safety Report 13496337 (Version 1)
Quarter: 2017Q2

REPORT INFORMATION
  Report Type: Spontaneous
  Country: US (occurrence: US)
  Receive Date: 20170428
  Receipt Date: 20170428
  Transmission Date: 20170830
  Serious: No
  Sender: FDA-Public Use
  Company Number: None

PATIENT
  Age: 51 Year
  Sex: Female
  Weight: 94.5 kg

DRUGS (4)
  1. PRAMIPEXOLE 0.5MG. PRAMIPEXOLE [Suspect]
     Active Substance: PRAMIPEXOLE DIHYDROCHLORIDE
     Indication: RESTLESS LEGS SYNDROME
     Dosage: ?          QUANTITY:90 TABLET(S);?
     Route: 048
     Dates: start: 20170403, end: 20170427
  2. RANITIDINE. [Concomitant]
     Active Substance: RANITIDINE
  3. FEXOFINADINE [Concomitant]
  4. METOPROLOL XR [Concomitant]
     Active Substance: METOPROLOL SUCCINATE

REACTIONS (6)
  - Poor quality sleep [None]
  - Diarrhoea [None]
  - Malaise [None]
  - Limb discomfort [None]
  - Vomiting [None]
  - Hyperhidrosis [None]

NARRATIVE: CASE EVENT DATE: 20170428
